FAERS Safety Report 8480473 (Version 3)
Quarter: 2012Q4

REPORT INFORMATION
  Report Type: 
  Country: US (occurrence: US)
  Receive Date: 20120328
  Receipt Date: 20120829
  Transmission Date: 20130627
  Serious: Yes (Hospitalization)
  Sender: FDA-Public Use
  Company Number: US-ELI_LILLY_AND_COMPANY-US201203005557

PATIENT
  Age: 70 Year
  Sex: Male
  Weight: 77.1 kg

DRUGS (6)
  1. EFFIENT [Suspect]
     Indication: ACUTE MYOCARDIAL INFARCTION
     Dosage: 10 mg, qd
     Route: 048
     Dates: start: 20120214, end: 20120314
  2. BABY ASPIRIN [Concomitant]
  3. PROPOFOL [Concomitant]
     Dosage: 25 mg, bid
  4. LIPITOR [Concomitant]
     Dosage: 80 mg, qd
  5. LISINOPRIL [Concomitant]
     Dosage: 5 mg, qd
  6. HEPARIN [Concomitant]
     Dosage: UNK, every 8 hrs (while in hospital)

REACTIONS (1)
  - Cerebrovascular accident [Recovered/Resolved]
